FAERS Safety Report 5271376-0 (Version None)
Quarter: 2007Q1

REPORT INFORMATION
  Report Type: 
  Country: None (occurrence: None)
  Receive Date: 20070315
  Receipt Date: 20070302
  Transmission Date: 20070707
  Serious: Yes (Other)
  Sender: FDA-Public Use
  Company Number: T200700264

PATIENT
  Age: 43 Year
  Sex: Male

DRUGS (6)
  1. PAMELOR [Suspect]
     Indication: DEPRESSION
     Dosage: 30-150 MG, QD, UNK
  2. FLUVOXAMINE MALEATE [Concomitant]
  3. CHLORPROMAZINE [Concomitant]
  4. VALPROATE SODIUM [Concomitant]
  5. CLOMIPRAMINE HCL [Concomitant]
  6. MILNACIPRAN (MILNACIPRAN) [Concomitant]

REACTIONS (9)
  - BEDRIDDEN [None]
  - BRUGADA SYNDROME [None]
  - CEREBRAL ISCHAEMIA [None]
  - CLONIC CONVULSION [None]
  - DRUG LEVEL INCREASED [None]
  - DRY MOUTH [None]
  - ELECTROCARDIOGRAM ST SEGMENT ELEVATION [None]
  - SYNCOPE [None]
  - TREMOR [None]
